FAERS Safety Report 18377630 (Version 1)
Quarter: 2020Q4

REPORT INFORMATION
  Report Type: Spontaneous
  Country: US (occurrence: US)
  Receive Date: 20201013
  Receipt Date: 20201013
  Transmission Date: 20210114
  Serious: No
  Sender: FDA-Public Use
  Company Number: US-MICRO LABS LIMITED-ML2020-02956

PATIENT
  Sex: Female

DRUGS (1)
  1. DORZOLAMIDE HYDROCHLORIDE OPHTHALMIC SOLUTION USP, 2% [Suspect]
     Active Substance: DORZOLAMIDE HYDROCHLORIDE
     Indication: POSTOPERATIVE CARE
     Dosage: IN THE MORNING
     Route: 047

REACTIONS (2)
  - Dizziness [Unknown]
  - Contraindicated product administered [Unknown]
